FAERS Safety Report 19918036 (Version 4)
Quarter: 2022Q1

REPORT INFORMATION
  Report Type: Report from Study
  Country: KR (occurrence: None)
  Receive Date: 20211005
  Receipt Date: 20220202
  Transmission Date: 20220423
  Serious: Yes (Hospitalization)
  Sender: FDA-Public Use
  Company Number: KR-ROCHE-2924543

PATIENT
  Age: 76 Year
  Sex: Male
  Weight: 63.5 kg

DRUGS (32)
  1. TIRAGOLUMAB [Suspect]
     Active Substance: TIRAGOLUMAB
     Indication: Metastatic neoplasm
     Dosage: START DATE OF MOST RECENT DOSE OF STUDY DRUG PRIOR TO AE 14/SEP/2021 12:20 PM
     Route: 042
     Dates: start: 20210714
  2. ATEZOLIZUMAB [Suspect]
     Active Substance: ATEZOLIZUMAB
     Indication: Metastatic neoplasm
     Dosage: START DATE OF MOST RECENT DOSE OF STUDY DRUG PRIOR TO AE 14/SEP/2021 11:20 AM - 11:50 AM
     Route: 042
     Dates: start: 20210714
  3. CARBOPLATIN [Suspect]
     Active Substance: CARBOPLATIN
     Indication: Metastatic neoplasm
     Dosage: START DATE OF MOST RECENT DOSE OF STUDY DRUG PRIOR TO AE 14-SEP-2021 (447.1).
     Route: 042
     Dates: start: 20210714
  4. PEMETREXED [Suspect]
     Active Substance: PEMETREXED
     Indication: Metastatic neoplasm
     Dosage: START DATE OF MOST RECENT DOSE OF STUDY DRUG PRIOR TO AE 14/SEP/2021
     Route: 042
     Dates: start: 20210714
  5. FLUTICASONE FUROATE\VILANTEROL TRIFENATATE [Concomitant]
     Active Substance: FLUTICASONE FUROATE\VILANTEROL TRIFENATATE
     Indication: Asthma
     Dosage: 1 INHALATION
     Dates: start: 201803, end: 20211228
  6. MONTERIZINE [Concomitant]
     Indication: Asthma
     Route: 048
     Dates: start: 201803, end: 20211228
  7. FLUTICASONE FUROATE [Concomitant]
     Active Substance: FLUTICASONE FUROATE
     Dosage: 1 SPRAY
     Dates: start: 201803, end: 20211228
  8. AMOSARTAN [Concomitant]
     Indication: Hypertension
     Route: 048
     Dates: start: 2018
  9. AFENAC [Concomitant]
     Indication: Back pain
     Route: 048
     Dates: start: 2019, end: 20211228
  10. LIMADEX [Concomitant]
     Indication: Back pain
     Route: 048
     Dates: start: 2019, end: 20211228
  11. ACETAMINOPHEN\HYDROCODONE BITARTRATE [Concomitant]
     Active Substance: ACETAMINOPHEN\HYDROCODONE BITARTRATE
     Indication: Back pain
     Route: 048
     Dates: start: 2019, end: 20211228
  12. SHINBARO [Concomitant]
     Indication: Back pain
     Route: 048
     Dates: start: 2019, end: 20211228
  13. HERBALS [Concomitant]
     Active Substance: HERBALS
     Route: 048
     Dates: start: 2019, end: 20211228
  14. TAMINAL [Concomitant]
     Route: 048
     Dates: start: 202010, end: 20211228
  15. FOLCID [Concomitant]
     Route: 048
     Dates: start: 20210708, end: 20220105
  16. DEXAMETHASONE [Concomitant]
     Active Substance: DEXAMETHASONE
     Route: 048
     Dates: start: 20210713
  17. ACTINAMIDE [Concomitant]
     Route: 030
     Dates: start: 20210714
  18. EMEND [Concomitant]
     Active Substance: APREPITANT
     Route: 042
     Dates: start: 20210714
  19. ALOXI [Concomitant]
     Active Substance: PALONOSETRON HYDROCHLORIDE
     Route: 042
     Dates: start: 20210714
  20. DIAZEPAM [Concomitant]
     Active Substance: DIAZEPAM
     Route: 048
     Dates: start: 20210715
  21. RAMOSETRON HYDROCHLORIDE [Concomitant]
     Active Substance: RAMOSETRON HYDROCHLORIDE
     Route: 048
     Dates: start: 20210715
  22. GANAKHAN [Concomitant]
     Route: 048
     Dates: start: 20210715
  23. MEGACEF SUSPENSION [Concomitant]
     Indication: Decreased appetite
     Route: 048
     Dates: start: 20210721
  24. GRASIN [Concomitant]
     Route: 058
     Dates: start: 20210803
  25. MAGNESIUM OXIDE [Concomitant]
     Active Substance: MAGNESIUM OXIDE
     Indication: Constipation
     Route: 048
     Dates: start: 20210824
  26. URSODIOL [Concomitant]
     Active Substance: URSODIOL
     Indication: Alanine aminotransferase increased
     Route: 048
     Dates: start: 20210914, end: 20210922
  27. URSODIOL [Concomitant]
     Active Substance: URSODIOL
     Indication: Aspartate aminotransferase increased
     Route: 048
     Dates: start: 20210923, end: 20211026
  28. LIVIDI [Concomitant]
     Indication: Alanine aminotransferase increased
     Route: 048
     Dates: start: 20210923, end: 20211026
  29. LIVIDI [Concomitant]
     Indication: Aspartate aminotransferase increased
  30. TASNA [Concomitant]
     Route: 048
     Dates: start: 20210923, end: 20211026
  31. LOPERAMIDE [Concomitant]
     Active Substance: LOPERAMIDE
     Indication: Diarrhoea
     Route: 048
     Dates: start: 20210923
  32. DEMEROL [Concomitant]
     Active Substance: MEPERIDINE HYDROCHLORIDE
     Route: 042
     Dates: start: 20210929, end: 20210929

REACTIONS (1)
  - Enteritis [Recovered/Resolved]

NARRATIVE: CASE EVENT DATE: 20210925
